FAERS Safety Report 5450378-5 (Version None)
Quarter: 2007Q3

REPORT INFORMATION
  Report Type: 
  Country: None (occurrence: None)
  Receive Date: 20070912
  Receipt Date: 20070831
  Transmission Date: 20080115
  Serious: Yes (Hospitalization)
  Sender: FDA-Public Use
  Company Number: IT-PFIZER INC-2007073220

PATIENT
  Sex: Female

DRUGS (6)
  1. AZITHROMYCIN [Suspect]
     Indication: RESPIRATORY TRACT INFECTION
     Route: 048
     Dates: start: 20070814, end: 20070816
  2. OKI [Suspect]
     Indication: RESPIRATORY TRACT INFECTION
     Dosage: DAILY DOSE:160MG
     Route: 048
     Dates: start: 20070814, end: 20070817
  3. EUTIROX [Concomitant]
  4. MODURETIC 5-50 [Concomitant]
  5. MONOKET [Concomitant]
  6. RABEPRAZOLE SODIUM [Concomitant]

REACTIONS (2)
  - ANAEMIA [None]
  - GASTROINTESTINAL HAEMORRHAGE [None]
